FAERS Safety Report 11785368 (Version 1)
Quarter: 2015Q4

REPORT INFORMATION
  Report Type: Spontaneous
  Country: US (occurrence: None)
  Receive Date: 20151125
  Receipt Date: 20151125
  Transmission Date: 20160305
  Serious: No
  Sender: FDA-Public Use
  Company Number: None

PATIENT
  Age: 87 Year
  Sex: Female
  Weight: 56.7 kg

DRUGS (8)
  1. MULTIPLE VITAMINS [Concomitant]
     Active Substance: VITAMINS
  2. CALCIUM [Concomitant]
     Active Substance: CALCIUM
  3. DIGOXIN. [Suspect]
     Active Substance: DIGOXIN
     Indication: ARRHYTHMIA
     Dosage: 1 PILL DAILY ONCE A DAY MIDDLE OF DAY
     Route: 048
     Dates: start: 201501, end: 20151031
  4. MOTRIN [Concomitant]
     Active Substance: IBUPROFEN
  5. SYNTHROID [Concomitant]
     Active Substance: LEVOTHYROXINE SODIUM
  6. TROPROL [Concomitant]
  7. VITAMIN D3 [Concomitant]
     Active Substance: CHOLECALCIFEROL
  8. VIT B12 INJECTION [Concomitant]

REACTIONS (5)
  - Panic attack [None]
  - Vision blurred [None]
  - Diarrhoea [None]
  - Psychomotor hyperactivity [None]
  - Abdominal distension [None]

NARRATIVE: CASE EVENT DATE: 20151031
